FAERS Safety Report 9821949 (Version 1)
Quarter: 2014Q1

REPORT INFORMATION
  Report Type: Spontaneous
  Country: DE (occurrence: DE)
  Receive Date: 20140116
  Receipt Date: 20140116
  Transmission Date: 20141002
  Serious: Yes (Hospitalization)
  Sender: FDA-Public Use
  Company Number: DE-BAUSCH-BL-2014-000129

PATIENT
  Age: 72 Year
  Sex: Male
  Weight: 82 kg

DRUGS (5)
  1. TIMO EDO 0.5% [Suspect]
     Indication: GLAUCOMA
     Dosage: 1 DROP PER EYE IN EVENINGS AND MORNINGS
     Route: 047
     Dates: start: 20130710, end: 20130721
  2. TIMO EDO 0.25% [Suspect]
     Dosage: 1 DROP PER EYE IN EVENINGS AND MORNINGS
     Route: 047
     Dates: start: 20130727
  3. BETAMANN 0.3% EDO [Concomitant]
     Indication: GLAUCOMA
     Dosage: UNKNOWN
     Route: 047
  4. BETAMANN 0.3% EDO [Concomitant]
     Dosage: UNKNOWN
     Route: 047
     Dates: start: 20130722, end: 20130726
  5. CANDESARTAN [Concomitant]
     Indication: BLOOD PRESSURE
     Dosage: UNKNOWN
     Route: 065

REACTIONS (2)
  - Oedema peripheral [Not Recovered/Not Resolved]
  - Dehydration [Unknown]
